FAERS Safety Report 10150225 (Version 2)
Quarter: 2014Q2

REPORT INFORMATION
  Report Type: Spontaneous
  Country: DE (occurrence: DE)
  Receive Date: 20140502
  Receipt Date: 20140623
  Transmission Date: 20141212
  Serious: Yes (Death, Life-Threatening, Hospitalization)
  Sender: FDA-Public Use
  Company Number: DE-JNJFOC-20140420557

PATIENT
  Age: 85 Year
  Sex: Female
  Weight: 70 kg

DRUGS (3)
  1. XARELTO [Suspect]
     Indication: CEREBROVASCULAR ACCIDENT PROPHYLAXIS
     Route: 048
  2. XARELTO [Suspect]
     Indication: ATRIAL FIBRILLATION
     Route: 048
  3. CLOPIDOGREL [Interacting]
     Indication: STENT PLACEMENT
     Route: 065

REACTIONS (4)
  - Haemoglobin decreased [Fatal]
  - Gastrointestinal haemorrhage [Fatal]
  - Iron deficiency anaemia [Fatal]
  - Drug interaction [Unknown]
